FAERS Safety Report 8321196-5 (Version None)
Quarter: 2012Q2

REPORT INFORMATION
  Report Type: 
  Country: None (occurrence: None)
  Receive Date: 20120426
  Receipt Date: 20120411
  Transmission Date: 20120825
  Serious: No
  Sender: FDA-Public Use
  Company Number: B0794642A

PATIENT
  Age: 48 Year
  Sex: Female
  Weight: 69.8539 kg

DRUGS (12)
  1. PACLITAXEL [Suspect]
     Indication: BREAST CANCER
     Dosage: 315 MG / INTRAVENOUS
     Route: 042
     Dates: start: 20110524, end: 20110607
  2. GRANISETRON HCL [Suspect]
     Dosage: 2 MG/ PER DAY / ORAL
     Route: 048
  3. DEXAMETHASONE [Suspect]
     Dosage: 20 MG / INTRAVENOUS
     Route: 042
  4. GLUCOSEOX+LACTOPER+LYSOZY [Concomitant]
  5. RANITIDINE HYDROCHLORIDE [Suspect]
     Dosage: 50 MG/ INTRAVENOUS
     Route: 042
  6. DOMPERIDONE (FORMULATION UNKNOWN) (GENERIC) (DOMPERIDONE) [Suspect]
     Dosage: 20 MG / ORAL
     Route: 048
  7. CHLORPHENIRAMINE MALEATE [Suspect]
     Dosage: 10 MG / INTRAVENOUS
     Route: 042
  8. DOCUSATE [Concomitant]
  9. PACLITAXEL [Suspect]
     Dosage: 300 MG / INTRAVENOUS
     Route: 042
     Dates: start: 20110621, end: 20110705
  10. DOMPERIDONE (FORMULATION UNKNOWN) (GENERIC) (DOMPERIDONE) [Suspect]
     Dosage: 20 MG / ORAL
     Route: 048
  11. DEXAMETHASONE [Suspect]
     Dosage: 8 MG / PER DAY / ORAL
     Route: 048
  12. PEGFILGRASTIM (FORMULATION UNKNOWN) (GENERIC) (PEGFILGRASTIM) [Suspect]
     Dosage: 6 MG / SUBCUTANEOUS
     Route: 058

REACTIONS (5)
  - RESPIRATORY DISORDER [None]
  - FATIGUE [None]
  - DYSPNOEA [None]
  - CHEST DISCOMFORT [None]
  - CHEST PAIN [None]
